FAERS Safety Report 20680406 (Version 4)
Quarter: 2022Q3

REPORT INFORMATION
  Report Type: Spontaneous
  Country: JP (occurrence: JP)
  Receive Date: 20220406
  Receipt Date: 20220909
  Transmission Date: 20221027
  Serious: Yes (Life-Threatening, Hospitalization, Disabling)
  Sender: FDA-Public Use
  Company Number: JP-Eisai-202113664_LEN-EC_P_1

PATIENT
  Age: 52 Year
  Sex: Female
  Weight: 52 kg

DRUGS (2)
  1. LENVIMA [Suspect]
     Active Substance: LENVATINIB
     Indication: Endometrial cancer
     Route: 048
     Dates: start: 20220202, end: 20220209
  2. KEYTRUDA [Suspect]
     Active Substance: PEMBROLIZUMAB
     Indication: Endometrial cancer
     Route: 041
     Dates: start: 20220202, end: 20220202

REACTIONS (7)
  - Peritonitis [Recovering/Resolving]
  - Hyponatraemia [Recovering/Resolving]
  - Enterocutaneous fistula [Recovered/Resolved with Sequelae]
  - Enterovesical fistula [Recovered/Resolved with Sequelae]
  - Urogenital fistula [Recovered/Resolved with Sequelae]
  - Female genital tract fistula [Recovered/Resolved with Sequelae]
  - Intestinal perforation [Recovered/Resolved]

NARRATIVE: CASE EVENT DATE: 20220201
